FAERS Safety Report 19477873 (Version 2)
Quarter: 2021Q3

REPORT INFORMATION
  Report Type: Report from Study
  Country: JP (occurrence: JP)
  Receive Date: 20210630
  Receipt Date: 20210706
  Transmission Date: 20211014
  Serious: Yes (Hospitalization)
  Sender: FDA-Public Use
  Company Number: JP-EXELIXIS-XL18421041937

PATIENT
  Age: 64 Year
  Sex: Male
  Weight: 59.8 kg

DRUGS (6)
  1. CABOZANTINIB [Suspect]
     Active Substance: CABOZANTINIB
     Indication: METASTASES TO LUNG
     Dosage: UNK
  2. CABOZANTINIB [Suspect]
     Active Substance: CABOZANTINIB
     Indication: RECTAL CANCER
     Dosage: 60 MILLIGRAM, QD
     Route: 048
     Dates: start: 20210422, end: 20210614
  3. CABOZANTINIB [Suspect]
     Active Substance: CABOZANTINIB
     Indication: METASTASES TO LYMPH NODES
     Dosage: UNK
  4. HERBAL NOS [Concomitant]
     Active Substance: HERBALS
     Indication: DECREASED APPETITE
     Dosage: 1 DOSAGE FORM, TID
     Route: 048
     Dates: start: 20210513
  5. LOPERAMIDE HYDROCHLORIDE. [Concomitant]
     Active Substance: LOPERAMIDE HYDROCHLORIDE
     Indication: DIARRHOEA
     Dosage: 2 MILLIGRAM
     Route: 048
     Dates: start: 201607
  6. MIYA?BM [Concomitant]
     Active Substance: CLOSTRIDIUM BUTYRICUM SPORES STRAIN M-55
     Indication: DIARRHOEA
     Dosage: 1 DOSAGE FORM, TID
     Route: 048
     Dates: start: 20210603

REACTIONS (1)
  - Pneumonia bacterial [Not Recovered/Not Resolved]

NARRATIVE: CASE EVENT DATE: 20210619
